FAERS Safety Report 5590611-2 (Version None)
Quarter: 2008Q1

REPORT INFORMATION
  Report Type: 
  Country: None (occurrence: None)
  Receive Date: 20080114
  Receipt Date: 20080102
  Transmission Date: 20080703
  Serious: Yes (Other)
  Sender: FDA-Public Use
  Company Number: US-PFIZER INC-2008001485

PATIENT
  Sex: Female
  Weight: 81.6 kg

DRUGS (9)
  1. CHANTIX [Suspect]
     Indication: SMOKING CESSATION THERAPY
  2. XANAX [Suspect]
  3. ZOLOFT [Suspect]
     Indication: DEPRESSION
  4. SOMA [Concomitant]
  5. DAYPRO [Concomitant]
  6. ACETYLSALICYLIC ACID SRT [Concomitant]
  7. VITAMINS [Concomitant]
  8. METOPROLOL [Concomitant]
  9. LISINOPRIL [Concomitant]

REACTIONS (3)
  - AGGRESSION [None]
  - PSYCHOTIC BEHAVIOUR [None]
  - VIOLENCE-RELATED SYMPTOM [None]
